FAERS Safety Report 5502928-8 (Version None)
Quarter: 2007Q4

REPORT INFORMATION
  Report Type: 
  Country: None (occurrence: None)
  Receive Date: 20071031
  Receipt Date: 20071026
  Transmission Date: 20080405
  Serious: Yes (Life-Threatening, Hospitalization)
  Sender: FDA-Public Use
  Company Number: B0486509A

PATIENT
  Age: 77 Year
  Sex: Male
  Weight: 60 kg

DRUGS (10)
  1. PAXIL [Suspect]
     Indication: DEPRESSION
     Dosage: 20MG PER DAY
     Route: 048
     Dates: start: 20070824, end: 20070903
  2. CRAVIT [Suspect]
     Indication: RESPIRATORY TRACT INFECTION
     Dosage: 100MG TWICE PER DAY
     Route: 048
     Dates: start: 20070829, end: 20070831
  3. ASPIRIN [Concomitant]
     Indication: CEREBRAL INFARCTION
     Dosage: 100MG PER DAY
     Route: 048
     Dates: start: 20070807, end: 20070903
  4. PLETAL [Concomitant]
     Indication: CEREBRAL INFARCTION
     Dosage: 200MG PER DAY
     Route: 048
     Dates: start: 20070809, end: 20070903
  5. LANSOPRAZOLE [Concomitant]
     Dosage: 15MG PER DAY
     Route: 048
     Dates: start: 20070807, end: 20070903
  6. MUCODYNE [Concomitant]
     Indication: UPPER RESPIRATORY TRACT INFLAMMATION
     Dosage: 200MG PER DAY
     Route: 048
     Dates: start: 20070810, end: 20070903
  7. ZANTAC [Concomitant]
  8. UNKNOWN DRUG [Concomitant]
     Indication: PNEUMONIA
     Dosage: 4.5G PER DAY
     Route: 042
     Dates: start: 20070901
  9. UNKNOWN DRUG [Concomitant]
     Dosage: 1000ML PER DAY
     Route: 042
     Dates: start: 20070901
  10. SOLULACT [Concomitant]
     Dosage: 500ML PER DAY
     Route: 042
     Dates: start: 20070901

REACTIONS (32)
  - ACTIVATED PARTIAL THROMBOPLASTIN TIME PROLONGED [None]
  - ALANINE AMINOTRANSFERASE INCREASED [None]
  - ASPARTATE AMINOTRANSFERASE INCREASED [None]
  - BLOOD ALBUMIN DECREASED [None]
  - BLOOD CHLORIDE DECREASED [None]
  - BLOOD CHLORIDE INCREASED [None]
  - BLOOD CREATINE PHOSPHOKINASE INCREASED [None]
  - BLOOD CREATININE INCREASED [None]
  - BLOOD FIBRINOGEN INCREASED [None]
  - BLOOD GLUCOSE DECREASED [None]
  - BLOOD GLUCOSE INCREASED [None]
  - BLOOD LACTATE DEHYDROGENASE INCREASED [None]
  - BLOOD POTASSIUM DECREASED [None]
  - BLOOD SODIUM DECREASED [None]
  - BLOOD UREA INCREASED [None]
  - BLOOD URIC ACID INCREASED [None]
  - CREATINE PHOSPHOKINASE DECREASED [None]
  - DEPRESSED LEVEL OF CONSCIOUSNESS [None]
  - DISSEMINATED INTRAVASCULAR COAGULATION [None]
  - ELECTROPHORESIS PROTEIN ABNORMAL [None]
  - FIBRIN D DIMER INCREASED [None]
  - FIBRIN DEGRADATION PRODUCTS INCREASED [None]
  - GAMMA-GLUTAMYLTRANSFERASE [None]
  - HAEMOGLOBIN DECREASED [None]
  - MYOGLOBIN BLOOD INCREASED [None]
  - PLATELET COUNT DECREASED [None]
  - PYREXIA [None]
  - RED BLOOD CELL COUNT DECREASED [None]
  - RHABDOMYOLYSIS [None]
  - TACHYCARDIA [None]
  - THROMBIN-ANTITHROMBIN III COMPLEX INCREASED [None]
  - WHITE BLOOD CELL COUNT INCREASED [None]
